FAERS Safety Report 11359800 (Version 4)
Quarter: 2015Q3

REPORT INFORMATION
  Report Type: Spontaneous
  Country: GB (occurrence: GB)
  Receive Date: 20150809
  Receipt Date: 20150810
  Transmission Date: 20151125
  Serious: Yes (Other)
  Sender: FDA-Public Use
  Company Number: GB-DRREDDYS-GER/UKI/15/0049849

PATIENT
  Age: 40 Year
  Sex: Male
  Weight: 116.2 kg

DRUGS (4)
  1. ZAPONEX [Interacting]
     Active Substance: CLOZAPINE
     Indication: PRODUCT USED FOR UNKNOWN INDICATION
     Route: 048
     Dates: start: 20120712
  2. SIMVASTATIN. [Concomitant]
     Active Substance: SIMVASTATIN
     Indication: HYPERCHOLESTEROLAEMIA
     Route: 048
  3. SERTRALINE [Suspect]
     Active Substance: SERTRALINE HYDROCHLORIDE
     Indication: DEPRESSED MOOD
     Route: 048
     Dates: start: 20150428
  4. FULTIUM-D3 [Concomitant]
     Indication: VITAMIN D DEFICIENCY

REACTIONS (3)
  - Drug interaction [Unknown]
  - Platelet count decreased [Not Recovered/Not Resolved]
  - Antipsychotic drug level increased [Unknown]

NARRATIVE: CASE EVENT DATE: 20141203
